FAERS Safety Report 20306528 (Version 2)
Quarter: 2022Q2

REPORT INFORMATION
  Report Type: Spontaneous
  Country: US (occurrence: US)
  Receive Date: 20220106
  Receipt Date: 20220418
  Transmission Date: 20220720
  Serious: Yes (Other)
  Sender: FDA-Public Use
  Company Number: US-PFIZER INC-202101258013

PATIENT
  Age: 56 Year
  Sex: Female

DRUGS (1)
  1. XELJANZ [Suspect]
     Active Substance: TOFACITINIB CITRATE
     Indication: Rheumatoid arthritis
     Dosage: 11 MG, 1X/DAY
     Route: 048
     Dates: start: 202107, end: 202201

REACTIONS (9)
  - Polypectomy [Unknown]
  - Therapeutic product effect incomplete [Unknown]
  - Swelling [Unknown]
  - Walking disability [Unknown]
  - Urinary incontinence [Unknown]
  - Sitting disability [Unknown]
  - Fungal infection [Unknown]
  - Skin infection [Recovered/Resolved]
  - Vulvovaginal burning sensation [Recovered/Resolved]
